FAERS Safety Report 12795655 (Version 1)
Quarter: 2016Q3

REPORT INFORMATION
  Report Type: Report from Study
  Country: US (occurrence: US)
  Receive Date: 20160929
  Receipt Date: 20160929
  Transmission Date: 20161109
  Serious: Yes (Other)
  Sender: FDA-Public Use
  Company Number: US-AMGEN-USASL2016132844

PATIENT

DRUGS (1)
  1. KYPROLIS [Suspect]
     Active Substance: CARFILZOMIB
     Indication: PRODUCT USED FOR UNKNOWN INDICATION
     Dosage: UNK
     Route: 065

REACTIONS (53)
  - Polyneuropathy [Unknown]
  - Acute respiratory distress syndrome [Unknown]
  - Hyperkalaemia [Unknown]
  - Sepsis [Unknown]
  - Neutropenia [Unknown]
  - Chest pain [Unknown]
  - Cataract [Unknown]
  - Septic shock [Unknown]
  - Respiratory disorder [Unknown]
  - Pterygium [Unknown]
  - Fluid overload [Unknown]
  - Respiratory disorder [Unknown]
  - Hypotension [Unknown]
  - Adult failure to thrive [Unknown]
  - Bacteraemia [Unknown]
  - Vitreous degeneration [Unknown]
  - Type 2 diabetes mellitus [Unknown]
  - Neck pain [Unknown]
  - Pain in extremity [Unknown]
  - Chronic kidney disease [Unknown]
  - Cardiac failure [Unknown]
  - Renal failure [Unknown]
  - Acidosis [Unknown]
  - Unevaluable event [Unknown]
  - Pain [Unknown]
  - Anaemia [Unknown]
  - Vomiting [Unknown]
  - Immunodeficiency [Unknown]
  - Pneumonia [Unknown]
  - Acute kidney injury [Unknown]
  - Mass [Unknown]
  - Eye complication associated with device [Unknown]
  - Soft tissue disorder [Unknown]
  - Arthralgia [Unknown]
  - Head injury [Unknown]
  - Femoral neck fracture [Unknown]
  - Mental status changes [Unknown]
  - Cardiovascular disorder [Unknown]
  - Visual impairment [Unknown]
  - Essential hypertension [Unknown]
  - Nephrogenic anaemia [Unknown]
  - Chronic respiratory failure [Unknown]
  - Pleural effusion [Unknown]
  - Local swelling [Unknown]
  - Borderline glaucoma [Unknown]
  - Constipation [Unknown]
  - Urinary tract infection [Unknown]
  - Cough [Unknown]
  - Injury [Unknown]
  - Malnutrition [Unknown]
  - Hyperparathyroidism secondary [Unknown]
  - Oedema [Unknown]
  - Nausea [Unknown]

NARRATIVE: CASE EVENT DATE: 20130305
